FAERS Safety Report 7985535-7 (Version None)
Quarter: 2011Q4

REPORT INFORMATION
  Report Type: 
  Country: None (occurrence: None)
  Receive Date: 20111216
  Receipt Date: 20111208
  Transmission Date: 20120403
  Serious: Yes (Hospitalization, Other)
  Sender: FDA-Public Use
  Company Number: US-ABBOTT-11P-163-0881816-00

PATIENT
  Sex: Male
  Weight: 63.56 kg

DRUGS (8)
  1. UNKNOWN MOOD STABILIZER [Concomitant]
     Indication: AFFECTIVE DISORDER
  2. COLACE [Interacting]
  3. NORCOR [Concomitant]
     Indication: PAIN
  4. OXYCONTIN [Concomitant]
     Indication: PAIN
  5. COLACE [Interacting]
     Indication: CONSTIPATION
  6. MIRALAX [Concomitant]
     Indication: CONSTIPATION
  7. LUPRON DEPOT [Suspect]
     Indication: PROSTATE CANCER
     Dosage: RECEIVED ON 4-MONTH INJECTION
     Dates: start: 20111001
  8. CLONAZEPAM [Concomitant]
     Indication: PRODUCT USED FOR UNKNOWN INDICATION

REACTIONS (7)
  - PROSTATE CANCER [None]
  - HAEMORRHAGE [None]
  - HAEMATOMA [None]
  - URTICARIA [None]
  - PROCEDURAL PAIN [None]
  - DRUG INTERACTION [None]
  - PRURITUS [None]
